FAERS Safety Report 8134230-2 (Version None)
Quarter: 2012Q1

REPORT INFORMATION
  Report Type: 
  Country: None (occurrence: None)
  Receive Date: 20120201
  Receipt Date: 20120120
  Transmission Date: 20120608
  Serious: Yes (Hospitalization, Other)
  Sender: FDA-Public Use
  Company Number: 2012030704

PATIENT
  Sex: Female
  Weight: 19 kg

DRUGS (16)
  1. DOXYCYCLINE [Concomitant]
  2. MIRALAX [Concomitant]
  3. PRIVIGEN [Suspect]
  4. ASPIRIN [Concomitant]
  5. PRIVIGEN [Suspect]
     Indication: EPSTEIN-BARR VIRUS INFECTION
     Dosage: SEE IMAGE
     Route: 042
     Dates: start: 20111202, end: 20111202
  6. PRIVIGEN [Suspect]
     Indication: INFECTIOUS MONONUCLEOSIS
     Dosage: SEE IMAGE
     Route: 042
     Dates: start: 20111202, end: 20111202
  7. PRIVIGEN [Suspect]
     Indication: EPSTEIN-BARR VIRUS INFECTION
     Dosage: SEE IMAGE
     Route: 042
     Dates: start: 20111205, end: 20111205
  8. PRIVIGEN [Suspect]
     Indication: INFECTIOUS MONONUCLEOSIS
     Dosage: SEE IMAGE
     Route: 042
     Dates: start: 20111205, end: 20111205
  9. PRIVIGEN [Suspect]
     Indication: EPSTEIN-BARR VIRUS INFECTION
     Dosage: SEE IMAGE
     Route: 042
     Dates: start: 20111205, end: 20111205
  10. PRIVIGEN [Suspect]
     Indication: INFECTIOUS MONONUCLEOSIS
     Dosage: SEE IMAGE
     Route: 042
     Dates: start: 20111205, end: 20111205
  11. PRIVIGEN [Suspect]
     Indication: EPSTEIN-BARR VIRUS INFECTION
     Dosage: SEE IMAGE
     Route: 042
     Dates: start: 20111202, end: 20111202
  12. PRIVIGEN [Suspect]
     Indication: INFECTIOUS MONONUCLEOSIS
     Dosage: SEE IMAGE
     Route: 042
     Dates: start: 20111202, end: 20111202
  13. PRIVIGEN [Suspect]
     Indication: EPSTEIN-BARR VIRUS INFECTION
     Dosage: SEE IMAGE
     Route: 042
     Dates: start: 20111205, end: 20111205
  14. PRIVIGEN [Suspect]
     Indication: INFECTIOUS MONONUCLEOSIS
     Dosage: SEE IMAGE
     Route: 042
     Dates: start: 20111205, end: 20111205
  15. PRIVIGEN [Suspect]
  16. IBUPROFEN [Concomitant]

REACTIONS (2)
  - HAEMOLYSIS [None]
  - ANAEMIA [None]
